FAERS Safety Report 14171576 (Version 2)
Quarter: 2018Q1

REPORT INFORMATION
  Report Type: Report from Study
  Country: CA (occurrence: CA)
  Receive Date: 20171108
  Receipt Date: 20180104
  Transmission Date: 20180508
  Serious: Yes (Other)
  Sender: FDA-Public Use
  Company Number: CA-IPSEN BIOPHARMACEUTICALS, INC.-2017-13298

PATIENT
  Age: 50 Year
  Sex: Male
  Weight: 77 kg

DRUGS (1)
  1. SOMATULINE AUTOGEL 120MG [Suspect]
     Active Substance: LANREOTIDE ACETATE
     Indication: NEUROENDOCRINE TUMOUR
     Dosage: 120 MG
     Route: 058
     Dates: start: 20160707

REACTIONS (8)
  - Eructation [Recovering/Resolving]
  - Dyspepsia [Recovering/Resolving]
  - Pancreatitis [Recovering/Resolving]
  - Hyperphagia [Recovering/Resolving]
  - Nausea [Recovering/Resolving]
  - Pancreatolithiasis [Recovering/Resolving]
  - Abdominal discomfort [Recovering/Resolving]
  - Diarrhoea [Recovering/Resolving]

NARRATIVE: CASE EVENT DATE: 20171009
